FAERS Safety Report 9240996 (Version 1)
Quarter: 2013Q1

REPORT INFORMATION
  Report Type: Spontaneous
  Country: US (occurrence: None)
  Receive Date: 20121120
  Receipt Date: 20121120
  Transmission Date: 20140127
  Serious: No
  Sender: FDA-Public Use
  Company Number: 1000039393

PATIENT
  Age: 71 Year
  Sex: Female

DRUGS (7)
  1. VIIBRYD [Suspect]
     Indication: DEPRESSION
     Route: 048
     Dates: start: 20120927
  2. SINGULAIR [Suspect]
  3. KLONOPIN (CLONAZEPAM) (COLONAZEPAM) [Concomitant]
  4. TEMAZEPAN (TEMAZEPAM) (TEMAZEPAM) [Concomitant]
  5. MULTIVITAMINS (MULTIVITAMINS) (MULTIVITAMINS) [Concomitant]
  6. GLUCERNA (AMINO ACIDS NOS CARTHAMUS TINCTORIUS OIL/FR) (AMINO ACID NOS/ CARTHAMUS TINCTORIUS OIL/FR) [Concomitant]
  7. HIZENTRA (IMMUNGLOBULIN G HUMAN) (IMMUNOGLOBULIN G HUMAN) [Concomitant]

REACTIONS (5)
  - Malaise [None]
  - Gastrooesophageal reflux disease [None]
  - Blood glucose decreased [None]
  - Dyspnoea [None]
  - Drug interaction [None]
